FAERS Safety Report 24912022 (Version 1)
Quarter: 2025Q1

REPORT INFORMATION
  Report Type: Spontaneous
  Country: US (occurrence: US)
  Receive Date: 20250131
  Receipt Date: 20250131
  Transmission Date: 20250409
  Serious: No
  Sender: SANOFI AVENTIS
  Company Number: US-SA-2025SA030358

PATIENT
  Sex: Female
  Weight: 121 kg

DRUGS (11)
  1. DUPIXENT [Suspect]
     Active Substance: DUPILUMAB
     Indication: Nasal polyps
     Dosage: 300 MG, QOW
     Route: 058
  2. IBUPROFEN [Concomitant]
     Active Substance: IBUPROFEN
  3. TELMISARTAN [Concomitant]
     Active Substance: TELMISARTAN
  4. EZETIMIBE [Concomitant]
     Active Substance: EZETIMIBE
  5. VITAMIN D2 [Concomitant]
     Active Substance: ERGOCALCIFEROL
  6. LIDOCAINE [Concomitant]
     Active Substance: LIDOCAINE
  7. BUSPIRONE HCL [Concomitant]
     Active Substance: BUSPIRONE HYDROCHLORIDE
  8. CYANOCOBALAMIN [Concomitant]
     Active Substance: CYANOCOBALAMIN
  9. LORATADINE [Concomitant]
     Active Substance: LORATADINE
  10. MELOXICAM [Concomitant]
     Active Substance: MELOXICAM
  11. TRAMADOL HCL [Concomitant]
     Active Substance: TRAMADOL HYDROCHLORIDE

REACTIONS (4)
  - Pain [Unknown]
  - Back pain [Unknown]
  - Injection site pain [Unknown]
  - Injection site reaction [Unknown]
